FAERS Safety Report 8365950-2 (Version None)
Quarter: 2012Q2

REPORT INFORMATION
  Report Type: 
  Country: None (occurrence: None)
  Receive Date: 20120517
  Receipt Date: 20120514
  Transmission Date: 20120825
  Serious: No
  Sender: FDA-Public Use
  Company Number: US-PFIZER INC-2012106747

PATIENT
  Sex: Male
  Weight: 73.9 kg

DRUGS (1)
  1. SUTENT [Suspect]
     Indication: PRIMITIVE NEUROECTODERMAL TUMOUR METASTATIC
     Dosage: 50 MG DAILY (TWO 25MG CAPSULES DAILY)
     Dates: start: 20120410

REACTIONS (3)
  - NAUSEA [None]
  - DYSGEUSIA [None]
  - GLOSSODYNIA [None]
